FAERS Safety Report 14166896 (Version 2)
Quarter: 2017Q4

REPORT INFORMATION
  Report Type: Report from Study
  Country: None (occurrence: US)
  Receive Date: 20171108
  Receipt Date: 20171117
  Transmission Date: 20180321
  Serious: Yes (Hospitalization, Other)
  Sender: FDA-Public Use
  Company Number: US-ABBVIE-17K-163-2154371-00

PATIENT
  Age: 64 Year
  Sex: Female
  Weight: 64.86 kg

DRUGS (8)
  1. DEVROM [Concomitant]
     Active Substance: BISMUTH SUBGALLATE
     Indication: GASTROENTEROSTOMY
  2. ALLOPURINOL. [Suspect]
     Active Substance: ALLOPURINOL
     Indication: RENAL LITHIASIS PROPHYLAXIS
     Route: 065
  3. ZOFRAN [Concomitant]
     Active Substance: ONDANSETRON HYDROCHLORIDE
     Indication: NAUSEA
  4. IMODIUM [Concomitant]
     Active Substance: LOPERAMIDE HYDROCHLORIDE
     Indication: DIARRHOEA
  5. HUMIRA [Suspect]
     Active Substance: ADALIMUMAB
     Indication: CROHN^S DISEASE
     Route: 058
     Dates: start: 20170508, end: 20171009
  6. LACTAID [Concomitant]
     Active Substance: LACTASE
     Indication: LACTOSE INTOLERANCE
  7. ZOLOFT [Concomitant]
     Active Substance: SERTRALINE HYDROCHLORIDE
     Indication: PAIN
  8. MERCAPTOPURINE. [Suspect]
     Active Substance: MERCAPTOPURINE
     Indication: CROHN^S DISEASE
     Route: 065

REACTIONS (8)
  - Fatigue [Recovering/Resolving]
  - Vomiting [Recovered/Resolved]
  - Haemoglobin decreased [Recovering/Resolving]
  - Melanocytic naevus [Not Recovered/Not Resolved]
  - Diarrhoea [Recovered/Resolved]
  - Basal cell carcinoma [Not Recovered/Not Resolved]
  - Nausea [Recovered/Resolved]
  - Malaise [Recovering/Resolving]

NARRATIVE: CASE EVENT DATE: 2017
